FAERS Safety Report 4316307-2 (Version None)
Quarter: 2004Q1

REPORT INFORMATION
  Report Type: 
  Country: None (occurrence: None)
  Receive Date: 20040311
  Receipt Date: 20031031
  Transmission Date: 20041129
  Serious: Yes (Hospitalization)
  Sender: FDA-Public Use
  Company Number: HQWYE689503NOV03

PATIENT
  Age: 65 Year
  Sex: Male

DRUGS (2)
  1. PROTONIX [Suspect]
     Dosage: 40 MG 1 X PER DAY, ORAL
     Route: 048
     Dates: end: 20031029
  2. ACE INHIBITOR [Concomitant]

REACTIONS (1)
  - ANGIONEUROTIC OEDEMA [None]
